FAERS Safety Report 5957233-2 (Version None)
Quarter: 2008Q4

REPORT INFORMATION
  Report Type: 
  Country: None (occurrence: None)
  Receive Date: 20081118
  Receipt Date: 20081106
  Transmission Date: 20090506
  Serious: Yes (Other)
  Sender: FDA-Public Use
  Company Number: US-ELI_LILLY_AND_COMPANY-US200811001753

PATIENT
  Sex: Male

DRUGS (7)
  1. BYETTA [Suspect]
     Indication: TYPE 2 DIABETES MELLITUS
     Dosage: 5 UG, 2/D
     Route: 058
     Dates: start: 20060503
  2. BYETTA [Suspect]
     Dosage: 10 UG, 2/D
     Route: 058
     Dates: end: 20080901
  3. GLUCOVANCE [Concomitant]
     Dosage: UNK, UNKNOWN
     Route: 048
  4. ZOCOR [Concomitant]
     Dosage: UNK, UNKNOWN
     Route: 048
  5. AVAPRO [Concomitant]
     Dosage: UNK, UNKNOWN
     Route: 048
  6. ASPIRIN [Concomitant]
     Dosage: UNK, UNKNOWN
     Route: 048
  7. FISH OIL [Concomitant]
     Dosage: UNK, UNKNOWN
     Route: 048

REACTIONS (1)
  - PANCREATITIS ACUTE [None]
